FAERS Safety Report 9516390 (Version 4)
Quarter: 2014Q1

REPORT INFORMATION
  Report Type: Report from Study
  Country: US (occurrence: US)
  Receive Date: 20130911
  Receipt Date: 20140117
  Transmission Date: 20141002
  Serious: Yes (Death, Life-Threatening, Hospitalization)
  Sender: FDA-Public Use
  Company Number: US-ACTELION-A-NJ2013-88204

PATIENT
  Age: 40 Year
  Sex: Female

DRUGS (1)
  1. TRACLEER [Suspect]
     Indication: PULMONARY HYPERTENSION
     Dosage: UNK
     Route: 048
     Dates: start: 201206, end: 20131010

REACTIONS (2)
  - Septic shock [Fatal]
  - Cardiac operation [Recovered/Resolved]
